FAERS Safety Report 9844707 (Version 1)
Quarter: 2014Q1

REPORT INFORMATION
  Report Type: Spontaneous
  Country: TR (occurrence: None)
  Receive Date: 20140122
  Receipt Date: 20140122
  Transmission Date: 20141002
  Serious: Yes (Hospitalization)
  Sender: FDA-Public Use
  Company Number: 7262213

PATIENT
  Age: 74 Year
  Sex: Female

DRUGS (3)
  1. LEVOTHYROXINE [Suspect]
     Indication: AUTOIMMUNE THYROIDITIS
  2. METHOTREXATE [Suspect]
     Indication: RHEUMATOID ARTHRITIS
     Dosage: 10 MG, 1 IN 1 WK
  3. TELMISARTAN (TELMISARTAN) (TELMISARTAN) [Concomitant]

REACTIONS (15)
  - Bone tuberculosis [None]
  - Pancytopenia [None]
  - Renal failure [None]
  - Hypercalcaemia [None]
  - Muscular weakness [None]
  - Fatigue [None]
  - Back pain [None]
  - Lip ulceration [None]
  - Pyrexia [None]
  - Oral mucosa erosion [None]
  - Lip haemorrhage [None]
  - Genital ulceration [None]
  - Skin ulcer [None]
  - Tenderness [None]
  - Hyporeflexia [None]
